FAERS Safety Report 5415024-5 (Version None)
Quarter: 2007Q3

REPORT INFORMATION
  Report Type: 
  Country: None (occurrence: None)
  Receive Date: 20070814
  Receipt Date: 20070814
  Transmission Date: 20080115
  Serious: Yes (Hospitalization)
  Sender: FDA-Public Use
  Company Number: None

PATIENT
  Age: 53 Year
  Sex: Male

DRUGS (4)
  1. LISINOPRIL [Suspect]
     Indication: HYPERTENSION
     Dosage: 10MG AM PO
     Route: 048
     Dates: start: 20060308, end: 20070810
  2. METOPROLOL SUCCINATE [Concomitant]
  3. NEPHROVIT [Concomitant]
  4. NICOTINE [Concomitant]

REACTIONS (4)
  - ANGIOEDEMA [None]
  - CHOLELITHIASIS [None]
  - ENDOTRACHEAL INTUBATION COMPLICATION [None]
  - PANCREATITIS [None]
